FAERS Safety Report 20618843 (Version 3)
Quarter: 2022Q3

REPORT INFORMATION
  Report Type: Spontaneous
  Country: CA (occurrence: CA)
  Receive Date: 20220322
  Receipt Date: 20220822
  Transmission Date: 20221026
  Serious: Yes (Hospitalization, Other)
  Sender: FDA-Public Use
  Company Number: CA-MLMSERVICE-20220304-3406308-1

PATIENT
  Age: 58 Year
  Sex: Female

DRUGS (2)
  1. METRONIDAZOLE [Suspect]
     Active Substance: METRONIDAZOLE
     Indication: Pouchitis
     Dosage: 500 MILLIGRAM, FOUR TIMES/DAY
     Route: 048
  2. METRONIDAZOLE [Suspect]
     Active Substance: METRONIDAZOLE
     Indication: Prophylaxis
     Dosage: 500 MILLIGRAM, 3 TIMES A DAY
     Route: 048

REACTIONS (4)
  - Cerebellar ataxia [Recovering/Resolving]
  - Peripheral sensory neuropathy [Recovering/Resolving]
  - Optic neuropathy [Recovering/Resolving]
  - Neurotoxicity [Recovering/Resolving]
